FAERS Safety Report 4476883-6 (Version None)
Quarter: 2004Q4

REPORT INFORMATION
  Report Type: 
  Country: None (occurrence: None)
  Receive Date: 20041013
  Receipt Date: 20040927
  Transmission Date: 20050328
  Serious: Yes (Hospitalization)
  Sender: FDA-Public Use
  Company Number: M2004-1461

PATIENT
  Age: 54 Year
  Sex: Female

DRUGS (1)
  1. DICLOFENAC, UNK, UNKNOWN MANUFACTURER [Suspect]
     Indication: ARTHRALGIA

REACTIONS (9)
  - ABDOMINAL MASS [None]
  - ABDOMINAL PAIN LOWER [None]
  - COLON CANCER [None]
  - COLONIC STENOSIS [None]
  - FAECAL OCCULT BLOOD POSITIVE [None]
  - FAECALITH [None]
  - INTESTINAL ISCHAEMIA [None]
  - INTESTINAL ULCER [None]
  - IRON DEFICIENCY ANAEMIA [None]
